FAERS Safety Report 13911810 (Version 1)
Quarter: 2017Q3

REPORT INFORMATION
  Report Type: Spontaneous
  Country: US (occurrence: US)
  Receive Date: 20170828
  Receipt Date: 20170828
  Transmission Date: 20171127
  Serious: No
  Sender: FDA-Public Use
  Company Number: US-ROCHE-GNE093620

PATIENT
  Age: 21 Year
  Sex: Female
  Weight: 62.48 kg

DRUGS (1)
  1. NUTROPIN AQ [Suspect]
     Active Substance: SOMATROPIN
     Indication: GROWTH HORMONE DEFICIENCY
     Route: 058
     Dates: start: 19990825, end: 199909

REACTIONS (4)
  - Swelling [Unknown]
  - Hypertension [Unknown]
  - Tachycardia [Unknown]
  - Oedema [Unknown]

NARRATIVE: CASE EVENT DATE: 19990902
